FAERS Safety Report 17463927 (Version 4)
Quarter: 2020Q1

REPORT INFORMATION
  Report Type: Spontaneous
  Country: FR (occurrence: FR)
  Receive Date: 20200226
  Receipt Date: 20200327
  Transmission Date: 20200409
  Serious: Yes (Other)
  Sender: FDA-Public Use
  Company Number: FR-AUROBINDO-AUR-APL-2020-009018

PATIENT
  Age: 81 Year
  Sex: Female
  Weight: 49 kg

DRUGS (11)
  1. AMOXICILLIN. [Suspect]
     Active Substance: AMOXICILLIN
     Indication: COUGH
     Dosage: UNK
     Route: 048
  2. TRAMADOL PROLONGED-RELEASE CAPSULE, HARD [Suspect]
     Active Substance: TRAMADOL
     Dosage: 150 MILLIGRAM
     Route: 065
     Dates: start: 2013, end: 2019
  3. TRAMADOL PROLONGED-RELEASE CAPSULE, HARD [Suspect]
     Active Substance: TRAMADOL
     Indication: BACK PAIN
     Dosage: 100 MILLIGRAM
     Route: 048
  4. TRANXENE [Concomitant]
     Active Substance: CLORAZEPATE DIPOTASSIUM
     Indication: PRODUCT USED FOR UNKNOWN INDICATION
     Dosage: 5 MILLIGRAM
     Route: 065
     Dates: start: 201909
  5. TRANXENE [Concomitant]
     Active Substance: CLORAZEPATE DIPOTASSIUM
     Dosage: 2 DOSAGE FORM, ONCE A DAY
     Route: 048
     Dates: start: 201909
  6. TRAMADOL. [Suspect]
     Active Substance: TRAMADOL
     Indication: BACK PAIN
     Dosage: 100 MILLIGRAM
     Route: 048
  7. TRAMADOL. [Suspect]
     Active Substance: TRAMADOL
     Indication: BACK PAIN
     Dosage: 150 MILLIGRAM
     Route: 048
     Dates: start: 2019
  8. AMOXICILLIN. [Suspect]
     Active Substance: AMOXICILLIN
     Indication: OROPHARYNGEAL PAIN
     Dosage: UNK
     Route: 065
  9. TRAMADOL BIOGARAN [Suspect]
     Active Substance: TRAMADOL
     Indication: BACK PAIN
     Dosage: UNK
     Route: 065
  10. LIPANOR [Concomitant]
     Active Substance: CIPROFIBRATE
     Indication: PRODUCT USED FOR UNKNOWN INDICATION
     Dosage: UNK
     Route: 048
     Dates: start: 201909, end: 201909
  11. INEXIUM [Concomitant]
     Active Substance: ESOMEPRAZOLE
     Indication: PRODUCT USED FOR UNKNOWN INDICATION
     Dosage: 20 MILLIGRAM
     Route: 048
     Dates: start: 201909, end: 201909

REACTIONS (35)
  - Ear swelling [Not Recovered/Not Resolved]
  - Tongue eruption [Recovering/Resolving]
  - Lymphadenopathy [Not Recovered/Not Resolved]
  - Bone pain [Unknown]
  - Mouth swelling [Not Recovered/Not Resolved]
  - Dyspepsia [Not Recovered/Not Resolved]
  - Mucosal pain [Recovering/Resolving]
  - Throat irritation [Unknown]
  - Burning sensation [Unknown]
  - Myalgia [Not Recovered/Not Resolved]
  - Ear discomfort [Unknown]
  - Eye irritation [Unknown]
  - Back pain [Unknown]
  - Dizziness [Unknown]
  - Dyspnoea [Not Recovered/Not Resolved]
  - Parosmia [Not Recovered/Not Resolved]
  - Urine abnormality [Unknown]
  - Walking disability [Not Recovered/Not Resolved]
  - Pruritus [Unknown]
  - Tinnitus [Recovered/Resolved]
  - Peripheral swelling [Not Recovered/Not Resolved]
  - Oropharyngeal pain [Recovering/Resolving]
  - Swollen tongue [Recovering/Resolving]
  - Fatigue [Unknown]
  - Laryngeal pain [Unknown]
  - Oral discomfort [Unknown]
  - Paraesthesia [Not Recovered/Not Resolved]
  - Cough [Not Recovered/Not Resolved]
  - Head discomfort [Not Recovered/Not Resolved]
  - Pain [Unknown]
  - Oedema mucosal [Unknown]
  - Vomiting [Unknown]
  - Feeling of body temperature change [Not Recovered/Not Resolved]
  - Taste disorder [Recovering/Resolving]
  - Product substitution issue [Unknown]

NARRATIVE: CASE EVENT DATE: 201909
